FAERS Safety Report 7374457-0 (Version None)
Quarter: 2011Q1

REPORT INFORMATION
  Report Type: 
  Country: None (occurrence: None)
  Receive Date: 20110301
  Receipt Date: 20101207
  Transmission Date: 20110831
  Serious: Yes (Disabling, Other)
  Sender: FDA-Public Use
  Company Number: ALA_01362_2010

PATIENT
  Sex: Male

DRUGS (2)
  1. REGLAN [Suspect]
     Indication: PRODUCT USED FOR UNKNOWN INDICATION
     Dosage: DF ORAL, DF ORAL
     Dates: start: 20080101, end: 20090101
  2. REGLAN [Suspect]
     Indication: PRODUCT USED FOR UNKNOWN INDICATION
     Dosage: DF ORAL, DF ORAL
     Dates: start: 20060101, end: 20070101

REACTIONS (1)
  - TARDIVE DYSKINESIA [None]
